FAERS Safety Report 8825886 (Version 2)
Quarter: 2012Q4

REPORT INFORMATION
  Report Type: 
  Country: CA (occurrence: CA)
  Receive Date: 20121005
  Receipt Date: 20121127
  Transmission Date: 20130627
  Serious: Yes (Death, Other)
  Sender: FDA-Public Use
  Company Number: CA-ELI_LILLY_AND_COMPANY-CA201209006636

PATIENT
  Age: 15 Year
  Sex: Male
  Weight: 54.42 kg

DRUGS (1)
  1. STRATTERA [Suspect]
     Indication: COGNITIVE DISORDER
     Dosage: 40mg twice/day
     Route: 048

REACTIONS (5)
  - Completed suicide [Fatal]
  - Suicidal ideation [Unknown]
  - Weight decreased [Unknown]
  - Stress [Unknown]
  - Off label use [Unknown]
